FAERS Safety Report 6259899-9 (Version None)
Quarter: 2009Q3

REPORT INFORMATION
  Report Type: 
  Country: None (occurrence: None)
  Receive Date: 20090708
  Receipt Date: 20090630
  Transmission Date: 20100115
  Serious: Yes (Other)
  Sender: FDA-Public Use
  Company Number: PHEH2009US06131

PATIENT
  Sex: Female
  Weight: 87.982 kg

DRUGS (20)
  1. RECLAST [Suspect]
     Indication: OSTEOPOROSIS
     Dosage: ONCE YEARLY
     Dates: start: 20090518, end: 20090518
  2. VESICARE [Concomitant]
     Dosage: 5 MG, QD
  3. PREDNISONE [Concomitant]
     Dosage: 20 MG, UNK
  4. TIZANIDINE [Concomitant]
     Dosage: 2 MG EVERY 8 HRS PRN
  5. ADVAIR HFA [Concomitant]
     Dosage: 250/50 1 PUFF DAILY
  6. SPIRIVA [Concomitant]
     Dosage: DAILY
  7. LASIX [Concomitant]
     Dosage: 40 MG, QD
  8. SYNTHROID [Concomitant]
     Dosage: 0.075 MG, QD
  9. FOLIC ACID [Concomitant]
     Dosage: 3 MG, QD
  10. ACIPHEX [Concomitant]
     Dosage: 20 MG BID
  11. REGLAN [Concomitant]
     Dosage: 5 MG, UNK
  12. PAREGORIC [Concomitant]
     Dosage: 2 MG/5 ML PRN
  13. TAMBOCOR [Concomitant]
     Dosage: 50 MG, BID
  14. ALDACTONE [Concomitant]
     Dosage: 25 MG, QD
  15. VERAPAMIL [Concomitant]
     Dosage: 180 MG, UNK
  16. ESTROGEN NOS [Concomitant]
  17. NORVASC [Concomitant]
     Dosage: 10 MG, QD
  18. ENBREL [Concomitant]
     Dosage: 25 MG TWICE A WEEK
  19. PERCOCET [Concomitant]
     Dosage: EVERY 4 HOURS PRN
  20. ACTONEL [Concomitant]
     Dosage: 150 MG MONTHLY

REACTIONS (4)
  - ARTHRALGIA [None]
  - MENISCUS LESION [None]
  - PAIN IN EXTREMITY [None]
  - PNEUMONIA [None]
